FAERS Safety Report 9681819 (Version 2)
Quarter: 2013Q4

REPORT INFORMATION
  Report Type: Report from Study
  Country: PT (occurrence: PT)
  Receive Date: 20131111
  Receipt Date: 20131111
  Transmission Date: 20140711
  Serious: Yes (Other)
  Sender: FDA-Public Use
  Company Number: PT-BAYER-2011-072985

PATIENT
  Age: 35 Year
  Sex: Male

DRUGS (2)
  1. BETAFERON [Suspect]
     Indication: RELAPSING-REMITTING MULTIPLE SCLEROSIS
     Dosage: 250 ?G, QOD
     Route: 058
     Dates: start: 20060301
  2. BACLOFEN [Concomitant]
     Dosage: 60 MG, QD
     Route: 048

REACTIONS (3)
  - Multiple sclerosis relapse [None]
  - Monoparesis [None]
  - Injection site mass [Not Recovered/Not Resolved]
